FAERS Safety Report 9343700 (Version 2)
Quarter: 2013Q4

REPORT INFORMATION
  Report Type: Spontaneous
  Country: GB (occurrence: None)
  Receive Date: 20130610
  Receipt Date: 20131022
  Transmission Date: 20140711
  Serious: Yes (Hospitalization)
  Sender: FDA-Public Use
  Company Number: 1737662

PATIENT
  Age: 71 Year
  Sex: Male
  Weight: 38.56 kg

DRUGS (13)
  1. IRINOTECAN HYDROCHLORIDE [Suspect]
     Indication: PANCREATIC CARCINOMA
     Dosage: 370 MG MILLIGAM(S) (1 WEEK), INTRAVNOUS (NOT OTHEWISE SPECIFIED)
     Route: 042
     Dates: start: 20121003, end: 20121205
  2. OXALIPLATIN [Suspect]
     Indication: PANCREATIC CARCINOMA
     Dosage: 180 MG MILLIGRAM(S) (1 DAY) INTRAVNEOU(S) (NOT OTHERWISE SPECIFIED)
     Route: 042
     Dates: start: 20121003, end: 20121205
  3. FLUOROURACIL [Suspect]
     Indication: PANCREATIC CARCINOMA
     Dosage: (1 DAY)
     Route: 040
     Dates: start: 20121003, end: 20121208
  4. FLUOROURACIL [Suspect]
     Dosage: (1 DAY)
     Route: 040
     Dates: start: 20121003, end: 20121208
  5. DEXAMETHASONE [Suspect]
     Indication: CHEMOTHERAPY
     Dosage: (2 DAY)
     Route: 048
     Dates: start: 20121003, end: 20121208
  6. DEXAMETHASONE [Suspect]
     Dosage: (2 DAY)
     Route: 048
     Dates: start: 20121003, end: 20121208
  7. FOLINIC ACID [Concomitant]
  8. DOMPERIDONE [Concomitant]
  9. GRANISETRON [Suspect]
  10. CIPROFLOXACIN [Concomitant]
  11. AMYLASE/LIPASE/PROTEASE [Concomitant]
  12. THYROXINE [Concomitant]
  13. AMLODIPINE [Concomitant]

REACTIONS (3)
  - Malaise [None]
  - Hypomania [None]
  - Depressed mood [None]
